FAERS Safety Report 6454626-4 (Version None)
Quarter: 2009Q4

REPORT INFORMATION
  Report Type: 
  Country: None (occurrence: None)
  Receive Date: 20091118
  Receipt Date: 20091103
  Transmission Date: 20100525
  Serious: Yes (Hospitalization)
  Sender: FDA-Public Use
  Company Number: 20090524

PATIENT
  Age: 67 Year
  Sex: Female

DRUGS (8)
  1. DEXAMETHASONE SODIUM PHOSPHATE [Suspect]
     Indication: CHEMOTHERAPY
     Dosage: 20 MG INTRAVENOUS
     Route: 042
  2. DEXAMETHASONE SODIUM PHOSPHATE [Suspect]
     Indication: PREMEDICATION
     Dosage: 20 MG INTRAVENOUS
     Route: 042
  3. PACLITAXEL [Suspect]
  4. FILGRASTIM [Suspect]
  5. CYCLOPHOSPHAMIDE [Suspect]
  6. PEGFILGRASTIM [Suspect]
  7. DEXAMETHASONE TAB [Suspect]
     Dosage: TWO 20 MG DOSES ORAL
     Route: 048
  8. DOXORUBICIN [Suspect]

REACTIONS (2)
  - DYSPNOEA AT REST [None]
  - LEUKOCYTOSIS [None]
